FAERS Safety Report 5214987-0 (Version None)
Quarter: 2006Q4

REPORT INFORMATION
  Report Type: 
  Country: None (occurrence: None)
  Receive Date: 20061107
  Receipt Date: 20060703
  Transmission Date: 20070319
  Serious: No
  Sender: FDA-Public Use
  Company Number: 200612815BWH

PATIENT
  Age: 70 Year
  Sex: Male

DRUGS (3)
  1. LEVITRA [Suspect]
     Indication: ERECTILE DYSFUNCTION
     Dosage: 20 MG, ONCE, ORAL
     Route: 048
     Dates: start: 20060502
  2. LOTREL [Concomitant]
  3. METOPROLOL TARTRATE [Concomitant]

REACTIONS (2)
  - ERECTILE DYSFUNCTION [None]
  - NASAL CONGESTION [None]
